FAERS Safety Report 8307456-2 (Version None)
Quarter: 2012Q2

REPORT INFORMATION
  Report Type: 
  Country: None (occurrence: None)
  Receive Date: 20120424
  Receipt Date: 20071105
  Transmission Date: 20120825
  Serious: Yes (Other)
  Sender: FDA-Public Use
  Company Number: US-TEVA-US021629

PATIENT
  Age: 35 Year
  Sex: Female

DRUGS (1)
  1. ACTIQ [Suspect]
     Indication: MIGRAINE
     Route: 002
     Dates: start: 20050101, end: 20070101

REACTIONS (4)
  - DRUG DEPENDENCE [None]
  - DENTAL CARIES [None]
  - SUICIDAL IDEATION [None]
  - TOOTH LOSS [None]
